FAERS Safety Report 8510024-0 (Version None)
Quarter: 2012Q3

REPORT INFORMATION
  Report Type: 
  Country: None (occurrence: None)
  Receive Date: 20120713
  Receipt Date: 20120710
  Transmission Date: 20120928
  Serious: Yes (Hospitalization, Disabling, Other)
  Sender: FDA-Public Use
  Company Number: US-009507513-1201USA00229

PATIENT

DRUGS (7)
  1. FOSAMAX [Suspect]
     Indication: OSTEOPOROSIS
     Dosage: 10 MG, QD
     Route: 048
  2. FORTEO [Concomitant]
     Indication: OSTEOPOROSIS
  3. SYNTHROID [Concomitant]
     Indication: HYPOTHYROIDISM
  4. FOSAMAX [Suspect]
     Indication: OSTEOARTHRITIS
     Dosage: 70 MG, QW
     Route: 048
     Dates: start: 19960101, end: 20101001
  5. FOSAMAX [Suspect]
     Indication: OSTEOPENIA
  6. FOSAMAX [Suspect]
     Dosage: 70 MG, UNK
     Route: 048
     Dates: start: 20080611
  7. PREMPRO [Concomitant]
     Indication: OSTEOPOROSIS

REACTIONS (39)
  - RENAL FAILURE [None]
  - WOUND HAEMATOMA [None]
  - CARPAL TUNNEL SYNDROME [None]
  - OESOPHAGEAL HYPOMOTILITY [None]
  - GASTRITIS EROSIVE [None]
  - WOUND DEHISCENCE [None]
  - OFF LABEL USE [None]
  - BACK PAIN [None]
  - DYSPNOEA [None]
  - POLLAKIURIA [None]
  - VENTRICULAR EXTRASYSTOLES [None]
  - NEUROPATHY PERIPHERAL [None]
  - PULMONARY HYPERTENSION [None]
  - ADVERSE EVENT [None]
  - CATARACT [None]
  - HELICOBACTER INFECTION [None]
  - DYSPHAGIA [None]
  - RESPIRATORY TRACT CONGESTION [None]
  - ANAEMIA [None]
  - GASTRIC ULCER [None]
  - ROTATOR CUFF SYNDROME [None]
  - FEMUR FRACTURE [None]
  - HYPERTENSION [None]
  - CHEST DISCOMFORT [None]
  - QRS AXIS ABNORMAL [None]
  - GASTROOESOPHAGEAL REFLUX DISEASE [None]
  - COLONIC POLYP [None]
  - DYSURIA [None]
  - GOUT [None]
  - BONE DISORDER [None]
  - SELECTIVE IGG SUBCLASS DEFICIENCY [None]
  - ARTHRALGIA [None]
  - HAEMORRHAGIC ANAEMIA [None]
  - INCREASED UPPER AIRWAY SECRETION [None]
  - BUNDLE BRANCH BLOCK RIGHT [None]
  - HEADACHE [None]
  - GAIT DISTURBANCE [None]
  - COUGH [None]
  - HIATUS HERNIA [None]
